FAERS Safety Report 13422752 (Version 1)
Quarter: 2017Q2

REPORT INFORMATION
  Report Type: Spontaneous
  Country: US (occurrence: US)
  Receive Date: 20170407
  Receipt Date: 20170407
  Transmission Date: 20170830
  Serious: Yes (Hospitalization)
  Sender: FDA-Public Use
  Company Number: None

PATIENT
  Age: 66 Year
  Sex: Male

DRUGS (1)
  1. THALOMID [Suspect]
     Active Substance: THALIDOMIDE
     Indication: CONGENITAL GASTROINTESTINAL VESSEL ANOMALY
     Route: 048
     Dates: start: 20170110

REACTIONS (5)
  - Sepsis [None]
  - Pneumonia [None]
  - Cardiac failure congestive [None]
  - Chronic obstructive pulmonary disease [None]
  - Pulmonary oedema [None]

NARRATIVE: CASE EVENT DATE: 20170307
